FAERS Safety Report 4642300-6 (Version None)
Quarter: 2005Q2

REPORT INFORMATION
  Report Type: 
  Country: None (occurrence: None)
  Receive Date: 20050420
  Receipt Date: 20050404
  Transmission Date: 20051028
  Serious: Yes (Hospitalization, Other)
  Sender: FDA-Public Use
  Company Number: USA050189452

PATIENT
  Age: 81 Year
  Sex: Female

DRUGS (6)
  1. FORTEO [Suspect]
     Dates: start: 20041201
  2. NORVASC [Concomitant]
  3. SYNTHROID [Concomitant]
  4. DAILY VITAMINS [Concomitant]
  5. PLAVIX [Concomitant]
  6. ASPIRIN [Concomitant]

REACTIONS (4)
  - ALOPECIA [None]
  - CORONARY ARTERIAL STENT INSERTION [None]
  - GOUT [None]
  - PHARMACEUTICAL PRODUCT COMPLAINT [None]
